FAERS Safety Report 5225355-X (Version None)
Quarter: 2007Q1

REPORT INFORMATION
  Report Type: 
  Country: None (occurrence: None)
  Receive Date: 20070131
  Receipt Date: 20070118
  Transmission Date: 20070707
  Serious: Yes (Other)
  Sender: FDA-Public Use
  Company Number: US-ELI_LILLY_AND_COMPANY-USA0507103526

PATIENT
  Age: 77 Year
  Sex: Female

DRUGS (6)
  1. LEVSIN [Concomitant]
  2. ATENOLOL [Concomitant]
  3. SYNTHROID [Concomitant]
  4. FORTEO [Suspect]
     Indication: OSTEOPOROSIS
     Dosage: UNK, UNK
     Dates: start: 20050801, end: 20051201
  5. FORTEO [Suspect]
     Dosage: UNK, UNKNOWN
     Dates: start: 20050605, end: 20050830
  6. CALCIUM [Concomitant]
     Dosage: 1600 MG, DAILY (1/D)
     Dates: end: 20050830

REACTIONS (12)
  - BLOOD CALCIUM INCREASED [None]
  - HEARING IMPAIRED [None]
  - MUSCULAR WEAKNESS [None]
  - PRURITUS [None]
  - RASH [None]
  - SKIN CANCER [None]
  - SKIN DISCOLOURATION [None]
  - SKIN IRRITATION [None]
  - SKIN NODULE [None]
  - SKIN REACTION [None]
  - TREMOR [None]
  - WEIGHT DECREASED [None]
